FAERS Safety Report 20994001 (Version 1)
Quarter: 2022Q2

REPORT INFORMATION
  Report Type: Spontaneous
  Country: JP (occurrence: JP)
  Receive Date: 20220622
  Receipt Date: 20220622
  Transmission Date: 20220720
  Serious: Yes (Other)
  Sender: FDA-Public Use
  Company Number: JP-Eisai-202203317_HAL_P_1

PATIENT
  Age: 65 Year
  Sex: Female

DRUGS (1)
  1. ERIBULIN [Suspect]
     Active Substance: ERIBULIN
     Indication: Invasive ductal breast carcinoma
     Dosage: DOSE UNKNOWN
     Route: 041

REACTIONS (1)
  - Interstitial lung disease [Recovering/Resolving]
